FAERS Safety Report 20391329 (Version 1)
Quarter: 2022Q1

REPORT INFORMATION
  Report Type: Spontaneous
  Country: US (occurrence: None)
  Receive Date: 20220127
  Receipt Date: 20220127
  Transmission Date: 20220423
  Serious: No
  Sender: FDA-Public Use
  Company Number: None

PATIENT
  Age: 56 Year
  Sex: Male
  Weight: 78.75 kg

DRUGS (1)
  1. PAXLOVID [Suspect]
     Active Substance: NIRMATRELVIR\RITONAVIR
     Indication: COVID-19
     Dosage: OTHER QUANTITY : 3 TABLET(S);?FREQUENCY : TWICE A DAY;?
     Route: 048
     Dates: start: 20220127

REACTIONS (6)
  - Rash macular [None]
  - Skin wrinkling [None]
  - Chills [None]
  - Peripheral coldness [None]
  - Exposure to SARS-CoV-2 [None]
  - Coronavirus test positive [None]

NARRATIVE: CASE EVENT DATE: 20220127
